FAERS Safety Report 4649722-8 (Version None)
Quarter: 2005Q2

REPORT INFORMATION
  Report Type: 
  Country: None (occurrence: None)
  Receive Date: 20050427
  Receipt Date: 20050411
  Transmission Date: 20051028
  Serious: Yes (Other)
  Sender: FDA-Public Use
  Company Number: USA050394240

PATIENT
  Age: 84 Year
  Sex: Female
  Weight: 37 kg

DRUGS (3)
  1. FORTEO [Suspect]
     Indication: OSTEOPOROSIS
     Dosage: 20 UG DAY
     Dates: start: 20041201
  2. PIROXICAM [Concomitant]
  3. SYNTHROID [Concomitant]

REACTIONS (2)
  - ASEPTIC NECROSIS BONE [None]
  - BONE DISORDER [None]
